FAERS Safety Report 4333154-6 (Version None)
Quarter: 2004Q2

REPORT INFORMATION
  Report Type: 
  Country: None (occurrence: None)
  Receive Date: 20040402
  Receipt Date: 20040402
  Transmission Date: 20050107
  Serious: Yes (Other)
  Sender: FDA-Public Use
  Company Number: None

PATIENT
  Age: 38 Year
  Sex: Female
  Weight: 56.6996 kg

DRUGS (2)
  1. ZICAM SPRAY / GEL [Suspect]
     Indication: NASOPHARYNGITIS
     Dosage: USED AS DIRECTED ON PRODUCT LABELING
  2. AFRIN [Concomitant]

REACTIONS (2)
  - ANOSMIA [None]
  - LARYNGITIS [None]
